FAERS Safety Report 8206724-2 (Version None)
Quarter: 2012Q1

REPORT INFORMATION
  Report Type: 
  Country: None (occurrence: None)
  Receive Date: 20120314
  Receipt Date: 20120309
  Transmission Date: 20120608
  Serious: No
  Sender: FDA-Public Use
  Company Number: US-BIOGENIDEC-2012BI008622

PATIENT
  Sex: Male

DRUGS (1)
  1. TYSABRI [Suspect]
     Indication: MULTIPLE SCLEROSIS
     Route: 042
     Dates: start: 20090921, end: 20111116

REACTIONS (5)
  - FATIGUE [None]
  - COGNITIVE DISORDER [None]
  - MENTAL IMPAIRMENT [None]
  - DYSGRAPHIA [None]
  - MOBILITY DECREASED [None]
